FAERS Safety Report 19819431 (Version 2)
Quarter: 2021Q4

REPORT INFORMATION
  Report Type: Spontaneous
  Country: GB (occurrence: GB)
  Receive Date: 20210913
  Receipt Date: 20211009
  Transmission Date: 20220303
  Serious: Yes (Hospitalization)
  Sender: FDA-Public Use
  Company Number: GB-AMGEN-GBRSP2021137574

PATIENT
  Age: 76 Year
  Sex: Female

DRUGS (2)
  1. ARANESP [Suspect]
     Active Substance: DARBEPOETIN ALFA
     Indication: Red blood cell count abnormal
     Dosage: 40 MICROGRAM
     Route: 065
     Dates: start: 20210225
  2. ARANESP [Suspect]
     Active Substance: DARBEPOETIN ALFA
     Indication: Renal impairment

REACTIONS (2)
  - Unevaluable event [Unknown]
  - Device difficult to use [Unknown]

NARRATIVE: CASE EVENT DATE: 20210101
